FAERS Safety Report 8437055-3 (Version None)
Quarter: 2012Q2

REPORT INFORMATION
  Report Type: 
  Country: None (occurrence: None)
  Receive Date: 20120614
  Receipt Date: 20120606
  Transmission Date: 20120825
  Serious: Yes (Other)
  Sender: FDA-Public Use
  Company Number: IT-JNJFOC-20120604421

PATIENT
  Age: 56 Year
  Sex: Male

DRUGS (9)
  1. OMEPRAZOLE [Suspect]
     Indication: SELF INJURIOUS BEHAVIOUR
     Route: 048
     Dates: start: 20120606, end: 20120606
  2. RISPERDAL [Suspect]
     Route: 048
     Dates: start: 20120606, end: 20120606
  3. RIFAXIMIN [Suspect]
     Indication: SELF INJURIOUS BEHAVIOUR
     Route: 048
     Dates: start: 20120606, end: 20120606
  4. RISPERDAL [Suspect]
     Route: 048
     Dates: start: 20120606, end: 20120606
  5. ACETAMINOPHEN AND CODEINE PHOSPHATE [Suspect]
     Indication: SELF INJURIOUS BEHAVIOUR
     Route: 048
     Dates: start: 20120606, end: 20120606
  6. RISPERDAL [Suspect]
     Indication: SELF INJURIOUS BEHAVIOUR
     Route: 048
  7. ALLOPURINOL [Suspect]
     Indication: SELF INJURIOUS BEHAVIOUR
     Route: 048
     Dates: start: 20120606, end: 20120606
  8. RISPERDAL [Suspect]
     Indication: PRODUCT USED FOR UNKNOWN INDICATION
     Route: 048
  9. PLAVIX [Suspect]
     Indication: SELF INJURIOUS BEHAVIOUR
     Route: 048
     Dates: start: 20120606, end: 20120606

REACTIONS (4)
  - MULTIPLE DRUG OVERDOSE INTENTIONAL [None]
  - COMA [None]
  - SELF INJURIOUS BEHAVIOUR [None]
  - MIOSIS [None]
